FAERS Safety Report 18031752 (Version 1)
Quarter: 2020Q3

REPORT INFORMATION
  Report Type: Spontaneous
  Country: US (occurrence: US)
  Receive Date: 20200716
  Receipt Date: 20200716
  Transmission Date: 20201103
  Serious: No
  Sender: FDA-Public Use
  Company Number: US-009507513-2007USA005578

PATIENT
  Age: 36 Year
  Sex: Male
  Weight: 65.31 kg

DRUGS (1)
  1. TEMODAR [Suspect]
     Active Substance: TEMOZOLOMIDE
     Indication: ASTROCYTOMA
     Dosage: UNK
     Route: 048
     Dates: start: 2017

REACTIONS (1)
  - Off label use [Unknown]
